FAERS Safety Report 11701585 (Version 12)
Quarter: 2022Q1

REPORT INFORMATION
  Report Type: Report from Study
  Country: JP (occurrence: JP)
  Receive Date: 20151105
  Receipt Date: 20220223
  Transmission Date: 20220423
  Serious: Yes (Other)
  Sender: FDA-Public Use
  Company Number: JP-BRISTOL-MYERS SQUIBB COMPANY-21472956

PATIENT

DRUGS (44)
  1. METRELEPTIN [Suspect]
     Active Substance: METRELEPTIN
     Indication: Lipoatrophy
     Dosage: 2.7 MG, QD
     Route: 058
     Dates: start: 20110324, end: 20130924
  2. METRELEPTIN [Suspect]
     Active Substance: METRELEPTIN
     Dosage: 2.7 MG, QD
     Route: 058
     Dates: start: 20130925, end: 20131203
  3. METRELEPTIN [Suspect]
     Active Substance: METRELEPTIN
     Dosage: 3 MG, QD
     Route: 058
     Dates: start: 20131204, end: 20171017
  4. METRELEPTIN [Suspect]
     Active Substance: METRELEPTIN
     Dosage: 4 MG, QD
     Route: 058
     Dates: start: 20171018
  5. METGLUCO [Suspect]
     Active Substance: METFORMIN HYDROCHLORIDE
     Indication: Lipoatrophy
     Dosage: 500 MG, QD
     Route: 048
     Dates: start: 20140122, end: 20140304
  6. METGLUCO [Suspect]
     Active Substance: METFORMIN HYDROCHLORIDE
     Dosage: 250 MG, QD
     Route: 048
     Dates: start: 20140305, end: 20140812
  7. METGLUCO [Suspect]
     Active Substance: METFORMIN HYDROCHLORIDE
     Dosage: 375 MG, QD
     Route: 048
     Dates: start: 20140813, end: 20141006
  8. METGLUCO [Suspect]
     Active Substance: METFORMIN HYDROCHLORIDE
     Dosage: 500 MG, QD
     Route: 048
     Dates: start: 20141007, end: 20150106
  9. METGLUCO [Suspect]
     Active Substance: METFORMIN HYDROCHLORIDE
     Dosage: 750 MG, QD
     Route: 048
     Dates: start: 20150107, end: 20151006
  10. METGLUCO [Suspect]
     Active Substance: METFORMIN HYDROCHLORIDE
     Dosage: 1000 MG, QD
     Route: 048
     Dates: start: 20151007, end: 20151124
  11. METGLUCO [Suspect]
     Active Substance: METFORMIN HYDROCHLORIDE
     Dosage: 1500 MG, QD
     Route: 048
     Dates: start: 20151125, end: 20160119
  12. METGLUCO [Suspect]
     Active Substance: METFORMIN HYDROCHLORIDE
     Dosage: 1250 MG, QD
     Route: 048
     Dates: start: 20160120, end: 20160405
  13. METGLUCO [Suspect]
     Active Substance: METFORMIN HYDROCHLORIDE
     Dosage: 1000 MG, QD
     Route: 048
     Dates: start: 20160406, end: 20170125
  14. METGLUCO [Suspect]
     Active Substance: METFORMIN HYDROCHLORIDE
     Dosage: 1250 MG, QD
     Route: 048
     Dates: start: 20170126, end: 20170325
  15. METGLUCO [Suspect]
     Active Substance: METFORMIN HYDROCHLORIDE
     Dosage: 2250 MG, QD
     Route: 048
     Dates: start: 20170326
  16. PROMAC                             /00024401/ [Concomitant]
     Indication: Gastritis
     Dosage: 75 MG, QD
     Dates: start: 20130810, end: 20131218
  17. CARBOCYSTEINE [Concomitant]
     Active Substance: CARBOCYSTEINE
     Indication: Upper respiratory tract infection
     Dosage: 1000 MG, QD
     Dates: start: 20131007, end: 20131014
  18. COCARL [Concomitant]
     Active Substance: ACETAMINOPHEN
     Indication: Upper respiratory tract infection
     Dosage: UNK
     Dates: start: 20131007, end: 20131019
  19. CEFZON                             /00559701/ [Concomitant]
     Indication: Upper respiratory tract infection
     Dosage: 300 MG, QD
     Dates: start: 20131016, end: 20131019
  20. CEFZON                             /00559701/ [Concomitant]
     Dosage: 300 MG, QD
     Dates: start: 20151215, end: 20151217
  21. LOXOPROFEN SODIUM [Concomitant]
     Active Substance: LOXOPROFEN SODIUM
     Indication: Bronchitis
     Dosage: 180 MG, QD
     Dates: start: 20131024, end: 20131028
  22. LEVOFLOXACIN HEMIHYDRATE [Concomitant]
     Active Substance: LEVOFLOXACIN
     Indication: Bronchitis
     Dosage: 300 MG, QD
     Dates: start: 20131024, end: 20131028
  23. CHLOPHEDRIN S                      /00560301/ [Concomitant]
     Indication: Bronchitis
     Dosage: 3 DOSAGE FORM/DAY
     Dates: start: 20131024, end: 20131028
  24. FLOMOX                             /01418603/ [Concomitant]
     Indication: Bronchitis
     Dosage: 300 MG, QD
     Dates: start: 20131030, end: 20131103
  25. LOBUCAVIR [Concomitant]
     Active Substance: LOBUCAVIR
     Indication: Bronchitis
     Dosage: 180 MG, QD
     Dates: start: 20131030, end: 20131103
  26. TRIMEBUTINE [Concomitant]
     Active Substance: TRIMEBUTINE
     Indication: Irritable bowel syndrome
     Dosage: 100 MG, QD
     Dates: start: 20131030, end: 20131120
  27. MEPENZOLATE BROMIDE [Concomitant]
     Active Substance: MEPENZOLATE BROMIDE
     Indication: Irritable bowel syndrome
     Dosage: 7.5 MG, QD
     Dates: start: 20131030, end: 20131120
  28. NAUZELIN [Concomitant]
     Active Substance: DOMPERIDONE
     Indication: Irritable bowel syndrome
     Dosage: UNK
     Dates: start: 20131123, end: 20131130
  29. REBAMIPIDE [Concomitant]
     Active Substance: REBAMIPIDE
     Indication: Irritable bowel syndrome
     Dosage: UNK
     Dates: start: 20131123, end: 20131130
  30. ALLEGRA [Concomitant]
     Active Substance: FEXOFENADINE HYDROCHLORIDE
     Indication: Rhinitis
     Dosage: 60 MG, QD
     Dates: start: 20140305, end: 20140505
  31. ALLEGRA [Concomitant]
     Active Substance: FEXOFENADINE HYDROCHLORIDE
     Dosage: 120 MG, QD
     Dates: start: 20150318, end: 20150609
  32. SODIUM PICOSULFATE [Concomitant]
     Active Substance: SODIUM PICOSULFATE
     Indication: Constipation
     Dosage: UNK
     Dates: start: 20140710
  33. LUTORAL [Concomitant]
     Active Substance: CHLORMADINONE ACETATE
     Indication: Menstruation irregular
     Dosage: 4 MG, QD
     Route: 048
     Dates: start: 20141105, end: 20170725
  34. ESTRADIOL [Concomitant]
     Active Substance: ESTRADIOL
     Indication: Menstruation irregular
     Dosage: UNK
     Dates: start: 20150715, end: 20160216
  35. ESTRADIOL [Concomitant]
     Active Substance: ESTRADIOL
     Dosage: UNK
     Dates: start: 20160217, end: 20170124
  36. ESTRADIOL [Concomitant]
     Active Substance: ESTRADIOL
     Dosage: UNK
     Dates: start: 20170125, end: 20170620
  37. ESTRADIOL [Concomitant]
     Active Substance: ESTRADIOL
     Dosage: UNK
     Dates: start: 20170621, end: 20200519
  38. CALONAL [Concomitant]
     Active Substance: ACETAMINOPHEN
     Indication: Dysmenorrhoea
     Dosage: UNK
     Dates: start: 20170419, end: 20170517
  39. DUPHASTON [Concomitant]
     Active Substance: DYDROGESTERONE
     Indication: Product used for unknown indication
     Dosage: 10 MG, QD
     Dates: start: 20170726
  40. MYTEAR                             /00883501/ [Concomitant]
     Indication: Dry eye
     Dosage: UNK
     Dates: start: 20170726
  41. FERROUS CITRATE [Concomitant]
     Active Substance: FERROUS CITRATE
     Indication: Iron deficiency anaemia
     Dosage: UNK
     Dates: start: 20190814, end: 20191210
  42. ESTRADIOL [Concomitant]
     Active Substance: ESTRADIOL
     Indication: Menstruation irregular
     Dosage: UNK
     Dates: start: 20200520
  43. AMBROXOL HYDROCHLORIDE [Concomitant]
     Active Substance: AMBROXOL HYDROCHLORIDE
     Indication: Rhinitis allergic
     Dosage: UNK
     Dates: start: 20200212, end: 20200219
  44. MONTELUKAST [Concomitant]
     Active Substance: MONTELUKAST SODIUM
     Indication: Rhinitis allergic
     Dosage: UNK
     Dates: start: 20200212, end: 20200219

REACTIONS (18)
  - Hepatic function abnormal [Recovering/Resolving]
  - Hepatic function abnormal [Recovering/Resolving]
  - Antibody test positive [Not Recovered/Not Resolved]
  - Constipation [Recovering/Resolving]
  - Glucose tolerance decreased [Recovering/Resolving]
  - Bronchitis [Recovered/Resolved]
  - Irritable bowel syndrome [Recovered/Resolved]
  - Rhinitis [Recovered/Resolved]
  - Rhinitis [Recovering/Resolving]
  - Menstruation irregular [Not Recovered/Not Resolved]
  - Dry eye [Recovering/Resolving]
  - Dysmenorrhoea [Recovering/Resolving]
  - Glucose tolerance decreased [Recovering/Resolving]
  - Iron deficiency anaemia [Not Recovered/Not Resolved]
  - Rhinitis allergic [Recovering/Resolving]
  - Helicobacter gastritis [Recovered/Resolved]
  - Upper respiratory tract infection [Recovered/Resolved]
  - Upper respiratory tract infection [Recovered/Resolved]

NARRATIVE: CASE EVENT DATE: 20131007
